FAERS Safety Report 23870794 (Version 1)
Quarter: 2024Q2

REPORT INFORMATION
  Report Type: Spontaneous
  Country: US (occurrence: US)
  Receive Date: 20240518
  Receipt Date: 20240518
  Transmission Date: 20240716
  Serious: Yes (Hospitalization, Other)
  Sender: FDA-Public Use
  Company Number: US-TEVA-VS-3198007

PATIENT
  Sex: Male

DRUGS (2)
  1. UZEDY [Suspect]
     Active Substance: RISPERIDONE
     Indication: Schizophrenia
     Dosage: 125 MG / 0.35 ML
     Route: 065
  2. LITHIUM [Concomitant]
     Active Substance: LITHIUM

REACTIONS (4)
  - Behaviour disorder [Unknown]
  - Affective disorder [Unknown]
  - Circumstance or information capable of leading to medication error [Unknown]
  - Substance abuse [Unknown]
